FAERS Safety Report 20422983 (Version 1)
Quarter: 2022Q1

REPORT INFORMATION
  Report Type: Report from Study
  Country: CA (occurrence: CA)
  Receive Date: 20220203
  Receipt Date: 20220203
  Transmission Date: 20220423
  Serious: Yes (Other)
  Sender: FDA-Public Use
  Company Number: CA-JNJFOC-20211015519

PATIENT
  Age: 62 Year
  Sex: Female

DRUGS (1)
  1. SIMPONI [Suspect]
     Active Substance: GOLIMUMAB
     Indication: Rheumatoid arthritis
     Route: 058
     Dates: start: 20150203

REACTIONS (5)
  - Cataract [Not Recovered/Not Resolved]
  - Rheumatoid arthritis [Unknown]
  - Eye infection [Recovering/Resolving]
  - Food allergy [Not Recovered/Not Resolved]
  - COVID-19 [Recovered/Resolved]
